FAERS Safety Report 24551789 (Version 2)
Quarter: 2025Q3

REPORT INFORMATION
  Report Type: Spontaneous
  Country: US (occurrence: US)
  Receive Date: 20241026
  Receipt Date: 20250810
  Transmission Date: 20251020
  Serious: No
  Sender: ALEXION PHARMACEUTICALS
  Company Number: US-AstraZeneca-CH-00720394A

PATIENT
  Sex: Female
  Weight: 63.492 kg

DRUGS (1)
  1. BREZTRI [Suspect]
     Active Substance: BUDESONIDE\FORMOTEROL\GLYCOPYRROLATE
     Indication: Chronic obstructive pulmonary disease
     Dosage: 2 MICROGRAM PER INHALATION, BID
     Dates: start: 202404

REACTIONS (2)
  - Muscle spasms [Unknown]
  - Abdominal pain [Unknown]
